FAERS Safety Report 7215969-X (Version None)
Quarter: 2011Q1

REPORT INFORMATION
  Report Type: 
  Country: None (occurrence: None)
  Receive Date: 20110104
  Receipt Date: 20110104
  Transmission Date: 20110831
  Serious: Yes (Other)
  Sender: FDA-Public Use
  Company Number: None

PATIENT
  Age: 48 Year
  Sex: Female
  Weight: 71.2147 kg

DRUGS (1)
  1. CIPROFLOXACIN [Suspect]
     Indication: KIDNEY INFECTION
     Dosage: 500 MG 2X PER DAY PO
     Route: 048
     Dates: start: 20101227, end: 20101229

REACTIONS (5)
  - BACK PAIN [None]
  - RESTLESSNESS [None]
  - DYSPNOEA [None]
  - ARTHRALGIA [None]
  - INSOMNIA [None]
